FAERS Safety Report 4860426-9 (Version None)
Quarter: 2005Q4

REPORT INFORMATION
  Report Type: 
  Country: None (occurrence: None)
  Receive Date: 20051219
  Receipt Date: 20051019
  Transmission Date: 20060501
  Serious: Yes (Other)
  Sender: FDA-Public Use
  Company Number: PHEH2005US11693

PATIENT
  Age: 60 Year
  Sex: Female
  Weight: 98.412 kg

DRUGS (11)
  1. DIOVAN HCT [Suspect]
     Indication: HYPERTENSION
     Dosage: 80/12.5 MG
     Dates: start: 20051014, end: 20051018
  2. ZOLOFT [Concomitant]
  3. LAMICTAL [Concomitant]
  4. PREVACID [Concomitant]
  5. INDERAL LA [Concomitant]
  6. RESTORIL [Concomitant]
  7. AUGMENTIN /UNK/ [Concomitant]
  8. PLAVIX [Concomitant]
  9. LORTAB [Concomitant]
  10. COLESTID [Concomitant]
  11. SPIRONOLACTONE [Concomitant]

REACTIONS (6)
  - CONDITION AGGRAVATED [None]
  - FEELING ABNORMAL [None]
  - HEADACHE [None]
  - TREMOR [None]
  - VENTRICULAR EXTRASYSTOLES [None]
  - VERTIGO [None]
